FAERS Safety Report 5232621-0 (Version None)
Quarter: 2007Q1

REPORT INFORMATION
  Report Type: 
  Country: None (occurrence: None)
  Receive Date: 20070206
  Receipt Date: 20070206
  Transmission Date: 20070707
  Serious: Yes (Hospitalization)
  Sender: FDA-Public Use
  Company Number: None

PATIENT
  Age: 78 Year
  Sex: Male
  Weight: 107 kg

DRUGS (13)
  1. WARFARIN SODIUM [Suspect]
     Indication: DEEP VEIN THROMBOSIS
     Dosage: 5 MG X 5 DAYS, 3.75 MGX2D DAILY PO
     Route: 048
     Dates: start: 20050505
  2. WARFARIN SODIUM [Suspect]
     Indication: PULMONARY EMBOLISM
     Dosage: 5 MG X 5 DAYS, 3.75 MGX2D DAILY PO
     Route: 048
     Dates: start: 20050505
  3. SULFAMETHOXAZOLE AND TRIMETHOPRIM [Suspect]
     Indication: URINARY TRACT INFECTION
     Dosage: 800/160 MG BID X 10 DAYS PO
     Route: 048
     Dates: start: 20061104, end: 20061114
  4. DEXAMETHASONE [Concomitant]
  5. FERROUS SULFATE TAB [Concomitant]
  6. FUROSEMIDE [Concomitant]
  7. SYNTHROID [Concomitant]
  8. HYDROCODONE/APAP [Concomitant]
  9. MORPHINE SULFATE [Concomitant]
  10. OMEPRAZOLE [Concomitant]
  11. POTASSIUM ACETATE [Concomitant]
  12. PSEUDOEPHEDRINE HCL [Concomitant]
  13. RANITIDINE [Concomitant]

REACTIONS (5)
  - ASTHENIA [None]
  - DIZZINESS [None]
  - HAEMATURIA [None]
  - INTERNATIONAL NORMALISED RATIO INCREASED [None]
  - URINARY TRACT INFECTION [None]
